FAERS Safety Report 11273531 (Version 2)
Quarter: 2015Q3

REPORT INFORMATION
  Report Type: Spontaneous
  Country: AR (occurrence: AR)
  Receive Date: 20150715
  Receipt Date: 20150728
  Transmission Date: 20151125
  Serious: Yes (Other)
  Sender: FDA-Public Use
  Company Number: AR-PFIZER INC-2015232255

PATIENT
  Age: 15 Year
  Sex: Male

DRUGS (4)
  1. HIDROTISONA [Concomitant]
     Dosage: UNK
  2. GENOTROPIN [Suspect]
     Active Substance: SOMATROPIN
     Indication: GROWTH HORMONE DEFICIENCY
     Dosage: 1.5 TO 2 MG, DAILY
     Dates: start: 20090101, end: 201501
  3. LEVOTHYROXINE. [Concomitant]
     Active Substance: LEVOTHYROXINE
  4. DESMOPRESINA [Concomitant]

REACTIONS (2)
  - Disease progression [Not Recovered/Not Resolved]
  - Optic nerve neoplasm [Not Recovered/Not Resolved]

NARRATIVE: CASE EVENT DATE: 201501
